FAERS Safety Report 5412094-5 (Version None)
Quarter: 2007Q3

REPORT INFORMATION
  Report Type: 
  Country: None (occurrence: None)
  Receive Date: 20070713
  Receipt Date: 20070328
  Transmission Date: 20080115
  Serious: No
  Sender: FDA-Public Use
  Company Number: 2007SP001128

PATIENT
  Age: 72 Year
  Sex: Female
  Weight: 72.5755 kg

DRUGS (3)
  1. LUNESTA [Suspect]
     Indication: INSOMNIA
     Dosage: 3 MG;ORAL
     Route: 048
     Dates: start: 20070301, end: 20070326
  2. LORAZEPAM [Concomitant]
  3. PLANT ALKALOIDS AND OTHER NATURE PRODUCTS [Concomitant]

REACTIONS (3)
  - DRY MOUTH [None]
  - INSOMNIA [None]
  - PAIN [None]
